FAERS Safety Report 4947947-5 (Version None)
Quarter: 2006Q1

REPORT INFORMATION
  Report Type: 
  Country: None (occurrence: None)
  Receive Date: 20060314
  Receipt Date: 20060302
  Transmission Date: 20060701
  Serious: Yes (Hospitalization)
  Sender: FDA-Public Use
  Company Number: COT_0410_2006

PATIENT
  Age: 67 Year
  Sex: Female
  Weight: 61.2356 kg

DRUGS (22)
  1. VENTAVIS [Suspect]
     Indication: PULMONARY HYPERTENSION
     Dosage: 5 MCG 6XD IH
     Route: 055
     Dates: start: 20060103
  2. HUMULIN H INSULIN [Concomitant]
  3. CENTRUM SILVER [Concomitant]
  4. NEURONTIN [Concomitant]
  5. FOLIC ACID [Concomitant]
  6. LANOXIN [Concomitant]
  7. XANAX [Concomitant]
  8. OXYGEN [Concomitant]
  9. REGLAN [Concomitant]
  10. LORATADINE [Concomitant]
  11. LACTULOSE [Concomitant]
  12. VICODIN [Concomitant]
  13. HUMULIN R [Concomitant]
  14. ZOLOFT [Concomitant]
  15. GLYCOLAX [Concomitant]
  16. SILDENAFIL [Concomitant]
  17. SYNTHROID [Concomitant]
  18. PRILOSEC [Concomitant]
  19. MAGNESIUM OXIDE [Concomitant]
  20. DEMADEX [Concomitant]
  21. VITAMIN B6 [Concomitant]
  22. COUMADIN [Concomitant]

REACTIONS (9)
  - CONDITION AGGRAVATED [None]
  - DYSPNOEA [None]
  - FATIGUE [None]
  - HEADACHE [None]
  - HYPERCALCAEMIA [None]
  - HYPOTENSION [None]
  - LOSS OF CONSCIOUSNESS [None]
  - SOFT TISSUE INJURY [None]
  - SYNCOPE [None]
